FAERS Safety Report 11774137 (Version 4)
Quarter: 2015Q4

REPORT INFORMATION
  Report Type: Report from Study
  Country: US (occurrence: US)
  Receive Date: 20151124
  Receipt Date: 20151210
  Transmission Date: 20160304
  Serious: Yes (Other)
  Sender: FDA-Public Use
  Company Number: US-KADMON PHARMACEUTICALS, LLC-KAD201511-004094

PATIENT
  Age: 64 Year
  Sex: Female
  Weight: 56.24 kg

DRUGS (9)
  1. METOPROLOL [Concomitant]
     Active Substance: METOPROLOL
  2. HYDROMORPHON [Concomitant]
     Active Substance: HYDROMORPHONE
  3. VIEKIRA PAK [Suspect]
     Active Substance: DASABUVIR\OMBITASVIR\PARITAPREVIR\RITONAVIR
     Indication: HEPATITIS C
     Dosage: TABLET
     Route: 048
     Dates: start: 20151016
  4. ANASTROZOLE. [Concomitant]
     Active Substance: ANASTROZOLE
  5. RIBASPHERE [Suspect]
     Active Substance: RIBAVIRIN
     Indication: HEPATITIS C
     Route: 048
     Dates: start: 20151016, end: 20151125
  6. DIAZEPAM. [Concomitant]
     Active Substance: DIAZEPAM
  7. ANASTROZOLE. [Concomitant]
     Active Substance: ANASTROZOLE
  8. CIPROFLOXACIN. [Concomitant]
     Active Substance: CIPROFLOXACIN
  9. RIBASPHERE [Suspect]
     Active Substance: RIBAVIRIN
     Route: 048
     Dates: start: 20151126

REACTIONS (7)
  - Cerebral calcification [Unknown]
  - Rash pruritic [Unknown]
  - Cerebral haemorrhage [Unknown]
  - Pancreatic enzymes increased [Unknown]
  - Headache [Unknown]
  - Insomnia [Unknown]
  - Musculoskeletal stiffness [Unknown]

NARRATIVE: CASE EVENT DATE: 201510
